FAERS Safety Report 17073602 (Version 1)
Quarter: 2019Q4

REPORT INFORMATION
  Report Type: Report from Study
  Country: DE (occurrence: DE)
  Receive Date: 20191126
  Receipt Date: 20191126
  Transmission Date: 20200122
  Serious: Yes (Hospitalization)
  Sender: FDA-Public Use
  Company Number: DE-ACTELION-A-US2019-198713

PATIENT
  Age: 51 Year
  Sex: Female

DRUGS (1)
  1. VENTAVIS [Suspect]
     Active Substance: ILOPROST
     Indication: PULMONARY HYPERTENSION
     Dosage: 10 MCG 4-6 XDAILY
     Route: 055
     Dates: start: 20190615

REACTIONS (2)
  - Inappropriate schedule of product administration [Unknown]
  - Hospitalisation [Unknown]
